FAERS Safety Report 9670175 (Version 1)
Quarter: 2013Q4

REPORT INFORMATION
  Report Type: Spontaneous
  Country: US (occurrence: US)
  Receive Date: 20131105
  Receipt Date: 20131105
  Transmission Date: 20140711
  Serious: No
  Sender: FDA-Public Use
  Company Number: US-BAUSCH-BL-2013-004345

PATIENT
  Age: 70 Year
  Sex: Female

DRUGS (2)
  1. LOTEPREDNOL ETABONATE OPHTHALMIC OINTMENT 0.5% [Suspect]
     Indication: SJOGREN^S SYNDROME
     Dosage: ONE RIBBON INTO RIGHT EYE ONCE
     Route: 047
     Dates: start: 20130720, end: 20130720
  2. LOTEPREDNOL ETABONATE OPHTHALMIC OINTMENT 0.5% [Suspect]
     Dosage: ONE RIBBON INTO LEFT EYE ONCE
     Route: 047
     Dates: start: 20130720, end: 20130720

REACTIONS (3)
  - Off label use [Recovered/Resolved]
  - Eye pruritus [Recovered/Resolved]
  - Blepharitis [Recovered/Resolved]
